FAERS Safety Report 23558339 (Version 1)
Quarter: 2024Q1

REPORT INFORMATION
  Report Type: Spontaneous
  Country: US (occurrence: None)
  Receive Date: 20240222
  Receipt Date: 20240222
  Transmission Date: 20240409
  Serious: Yes (Other)
  Sender: FDA-Public Use
  Company Number: None

PATIENT
  Age: 78 Year
  Sex: Male

DRUGS (24)
  1. ADEMPAS [Suspect]
     Active Substance: RIOCIGUAT
  2. PANTOPRAZOLE [Concomitant]
     Active Substance: PANTOPRAZOLE
  3. WARFARIN [Concomitant]
     Active Substance: WARFARIN
  4. GABAPENTIN [Concomitant]
     Active Substance: GABAPENTIN
  5. MONTELUKAST [Concomitant]
     Active Substance: MONTELUKAST SODIUM
  6. NPH INSULIN [Concomitant]
     Active Substance: INSULIN BEEF
  7. INSULIN NOS [Concomitant]
     Active Substance: INSULIN NOS
  8. INSULIN LISPRO [Concomitant]
     Active Substance: INSULIN LISPRO
  9. ESCITALOPRAM [Concomitant]
     Active Substance: ESCITALOPRAM OXALATE
  10. MEXILETINE [Concomitant]
     Active Substance: MEXILETINE
  11. WIXELA INHUB [Concomitant]
     Active Substance: FLUTICASONE PROPIONATE\SALMETEROL XINAFOATE
  12. BUMETANIDE [Concomitant]
     Active Substance: BUMETANIDE
  13. ATORVASTATIN [Concomitant]
     Active Substance: ATORVASTATIN
  14. FERROUS SULFATE [Concomitant]
     Active Substance: FERROUS SULFATE
  15. ALBUTEROL NEB SOLN [Concomitant]
  16. IPRATROPIUM INHL SOLN [Concomitant]
  17. ALBUTEROL SULFATE [Concomitant]
     Active Substance: ALBUTEROL SULFATE
  18. BISOPROLOL [Concomitant]
     Active Substance: BISOPROLOL\BISOPROLOL FUMARATE
  19. MAGNESIUM OXIDE [Concomitant]
     Active Substance: MAGNESIUM OXIDE
  20. FLONASE [Concomitant]
     Active Substance: FLUTICASONE PROPIONATE
  21. IPRATROPOUM NASAL SPRAY [Concomitant]
  22. VITAMINS [Concomitant]
     Active Substance: VITAMINS
  23. VITAMIN D3 [Concomitant]
     Active Substance: CHOLECALCIFEROL
  24. CALCIUM CITRATE [Concomitant]
     Active Substance: CALCIUM CITRATE

REACTIONS (1)
  - Cellulitis [None]

NARRATIVE: CASE EVENT DATE: 20240131
